FAERS Safety Report 9820739 (Version 2)
Quarter: 2014Q4

REPORT INFORMATION
  Report Type: Spontaneous
  Country: US (occurrence: None)
  Receive Date: 20131028
  Receipt Date: 20141015
  Transmission Date: 20150529
  Serious: Yes (Other)
  Sender: FDA-Public Use
  Company Number: 2013US001163

PATIENT
  Age: 40 Year
  Sex: Female
  Weight: 111 kg

DRUGS (7)
  1. POTASSIUM (POTASSIUM) [Concomitant]
     Active Substance: POTASSIUM
  2. TYLENOL [Concomitant]
     Active Substance: ACETAMINOPHEN
  3. PROMETHAZINE W/CODEINE (PROMETHAZINE W/CODEINE) [Concomitant]
  4. ICLUSIG [Suspect]
     Active Substance: PONATINIB
     Indication: CHRONIC MYELOID LEUKAEMIA
     Route: 048
     Dates: start: 20130202, end: 20130206
  5. SYMBICORT [Concomitant]
     Active Substance: BUDESONIDE\FORMOTEROL FUMARATE DIHYDRATE
  6. SYNTHROID [Concomitant]
     Active Substance: LEVOTHYROXINE SODIUM
  7. XANAX [Concomitant]
     Active Substance: ALPRAZOLAM

REACTIONS (15)
  - Abdominal pain upper [None]
  - Rash [None]
  - Pain in jaw [None]
  - Gamma-glutamyltransferase increased [None]
  - Pain [None]
  - Chills [None]
  - Lipase increased [None]
  - Fatigue [None]
  - Hepatic enzyme increased [None]
  - Heart rate increased [None]
  - Nausea [None]
  - Hepatotoxicity [None]
  - Skin irritation [None]
  - Headache [None]
  - Hepatic enzyme decreased [None]

NARRATIVE: CASE EVENT DATE: 20130202
